FAERS Safety Report 6564989-7 (Version None)
Quarter: 2010Q1

REPORT INFORMATION
  Report Type: 
  Country: None (occurrence: None)
  Receive Date: 20100201
  Receipt Date: 20100126
  Transmission Date: 20100710
  Serious: Yes (Other)
  Sender: FDA-Public Use
  Company Number: JP-PFIZER INC-2009292995

PATIENT
  Age: 46 Year
  Sex: Male

DRUGS (1)
  1. CHAMPIX [Suspect]
     Indication: NICOTINE DEPENDENCE
     Dosage: 1.0 MG, 2X/DAY
     Route: 048
     Dates: start: 20091008, end: 20091013

REACTIONS (2)
  - ASTHENIA [None]
  - GINGIVAL SWELLING [None]
